FAERS Safety Report 23081764 (Version 1)
Quarter: 2023Q4

REPORT INFORMATION
  Report Type: Spontaneous
  Country: US (occurrence: US)
  Receive Date: 20231019
  Receipt Date: 20231019
  Transmission Date: 20240109
  Serious: No
  Sender: FDA-Public Use
  Company Number: US-ChurchDwight-2023-CDW-01628

PATIENT

DRUGS (1)
  1. ZICAM COLD REMEDY (ZINC ACETATE ANHYDROUS\ZINC GLUCONATE) [Suspect]
     Active Substance: ZINC ACETATE ANHYDROUS\ZINC GLUCONATE
     Indication: Product used for unknown indication
     Route: 048

REACTIONS (1)
  - Ageusia [Unknown]
